FAERS Safety Report 9304904 (Version 1)
Quarter: 2013Q2

REPORT INFORMATION
  Report Type: Spontaneous
  Country: US (occurrence: None)
  Receive Date: 20130521
  Receipt Date: 20130521
  Transmission Date: 20140414
  Serious: Yes (Other)
  Sender: FDA-Public Use
  Company Number: 05032013-LF-A

PATIENT
  Age: 85 Year
  Sex: Male

DRUGS (1)
  1. HURRICAINE TOPICAL ANESTHETIC SPRAY [Suspect]
     Route: 048

REACTIONS (1)
  - Methaemoglobinaemia [None]
